FAERS Safety Report 9097113 (Version 1)
Quarter: 2013Q1

REPORT INFORMATION
  Report Type: Spontaneous
  Country: US (occurrence: None)
  Receive Date: 20130125
  Receipt Date: 20130125
  Transmission Date: 20140127
  Serious: Yes (Other)
  Sender: FDA-Public Use
  Company Number: 13-00237

PATIENT
  Age: 66 Year
  Sex: Male

DRUGS (2)
  1. ASTHMANEFRIN INHALATION SOLUTION, 2.25% [Suspect]
     Indication: ASTHMA
     Dosage: 1 VIAL, QD, 054
  2. COMBIVENT INHALER [Concomitant]

REACTIONS (2)
  - Cough [None]
  - Sputum discoloured [None]
